FAERS Safety Report 15976554 (Version 1)
Quarter: 2019Q1

REPORT INFORMATION
  Report Type: Spontaneous
  Country: US (occurrence: US)
  Receive Date: 20190218
  Receipt Date: 20190218
  Transmission Date: 20190418
  Serious: No
  Sender: FDA-Public Use
  Company Number: US-B.I. PHARMACEUTICALS,INC./RIDGEFIELD-2019-BI-006240

PATIENT
  Sex: Female

DRUGS (1)
  1. OFEV [Suspect]
     Active Substance: NINTEDANIB
     Indication: IDIOPATHIC PULMONARY FIBROSIS
     Dosage: 1 CAPSULE TWICE DAILY; FORM STRENGTH: 100 MG; FORMULATION: CAPSULE
     Route: 048

REACTIONS (3)
  - Contusion [Unknown]
  - Gastrointestinal haemorrhage [Unknown]
  - Skin lesion [Unknown]
